FAERS Safety Report 6880330-4 (Version None)
Quarter: 2010Q3

REPORT INFORMATION
  Report Type: 
  Country: None (occurrence: None)
  Receive Date: 20100728
  Receipt Date: 20100715
  Transmission Date: 20110219
  Serious: Yes (Other)
  Sender: FDA-Public Use
  Company Number: BR-PFIZER INC-2010084123

PATIENT
  Sex: Male
  Weight: 88 kg

DRUGS (3)
  1. VIAGRA [Suspect]
     Indication: ERECTILE DYSFUNCTION
     Dosage: 12.5MG (A QUARTER OF A 50MG-TABLET), UNKNOWN FREQUENCY
     Route: 048
     Dates: start: 20090701
  2. VIAGRA [Suspect]
     Dosage: 25MG (HALF 50MG-TABLET), UNKNOWN FREQUENCY
     Route: 048
     Dates: end: 20100501
  3. VIAGRA [Suspect]
     Dosage: 50MG, UNKNOWN FREQUENCY
     Route: 048
     Dates: start: 20100501

REACTIONS (6)
  - DRUG INEFFECTIVE [None]
  - ERYTHEMA [None]
  - FLUSHING [None]
  - NASAL CONGESTION [None]
  - OCULAR HYPERAEMIA [None]
  - VISION BLURRED [None]
